FAERS Safety Report 15576417 (Version 2)
Quarter: 2018Q4

REPORT INFORMATION
  Report Type: Spontaneous
  Country: BR (occurrence: BR)
  Receive Date: 20181101
  Receipt Date: 20181113
  Transmission Date: 20190205
  Serious: Yes (Hospitalization, Other)
  Sender: FDA-Public Use
  Company Number: BR-ALEXION PHARMACEUTICALS INC-A201814371

PATIENT
  Age: 36 Year
  Sex: Female
  Weight: 70 kg

DRUGS (3)
  1. SOLIRIS [Suspect]
     Active Substance: ECULIZUMAB
     Indication: ATYPICAL HAEMOLYTIC URAEMIC SYNDROME
     Dosage: 900 MG, QW
     Route: 042
     Dates: start: 20180627, end: 20180718
  2. SOLIRIS [Suspect]
     Active Substance: ECULIZUMAB
     Dosage: 1200 MG, Q2W
     Route: 042
     Dates: start: 20180725
  3. AMOXICILLIN. [Concomitant]
     Active Substance: AMOXICILLIN
     Indication: APPENDICITIS
     Dosage: UNK
     Route: 065

REACTIONS (3)
  - Pharyngitis [Unknown]
  - Appendicitis [Unknown]
  - Cough [Unknown]

NARRATIVE: CASE EVENT DATE: 201810
